FAERS Safety Report 15938737 (Version 1)
Quarter: 2019Q1

REPORT INFORMATION
  Report Type: Spontaneous
  Country: US (occurrence: US)
  Receive Date: 20190208
  Receipt Date: 20190208
  Transmission Date: 20190417
  Serious: No
  Sender: FDA-Public Use
  Company Number: US-SA-2019SA033936

PATIENT
  Sex: Male

DRUGS (6)
  1. ADDERALL [Concomitant]
     Active Substance: AMPHETAMINE ASPARTATE\AMPHETAMINE SULFATE\DEXTROAMPHETAMINE SACCHARATE\DEXTROAMPHETAMINE SULFATE
     Dosage: TAB 20 MG
  2. MOTRIN [Concomitant]
     Active Substance: IBUPROFEN
     Dosage: TAB 200 MG
  3. LEXAPRO [Concomitant]
     Active Substance: ESCITALOPRAM OXALATE
     Dosage: TAB 20 MG
  4. AUBAGIO [Suspect]
     Active Substance: TERIFLUNOMIDE
     Dosage: 14 MG, QD
     Route: 048
  5. BACLOFEN. [Concomitant]
     Active Substance: BACLOFEN
     Dosage: TAB 20 MG
  6. HYDROCODONE [Concomitant]
     Active Substance: HYDROCODONE
     Dosage: TAB 5-300MG

REACTIONS (5)
  - Visual impairment [Not Recovered/Not Resolved]
  - Headache [Not Recovered/Not Resolved]
  - Hypoaesthesia [Not Recovered/Not Resolved]
  - Condition aggravated [Not Recovered/Not Resolved]
  - Emotional disorder [Not Recovered/Not Resolved]
